FAERS Safety Report 6987155-X (Version None)
Quarter: 2010Q3

REPORT INFORMATION
  Report Type: 
  Country: None (occurrence: None)
  Receive Date: 20100916
  Receipt Date: 20100913
  Transmission Date: 20110219
  Serious: Yes (Death, Hospitalization, Other)
  Sender: FDA-Public Use
  Company Number: DE-PFIZER INC-2008020525

PATIENT
  Age: 66 Year
  Sex: Male
  Weight: 93 kg

DRUGS (7)
  1. SUNITINIB MALATE [Suspect]
     Indication: METASTATIC RENAL CELL CARCINOMA
     Dosage: 50 MG, 1X/DAY
     Route: 048
     Dates: start: 20060222, end: 20080228
  2. TRANDOLAPRIL [Concomitant]
     Dosage: UNK
     Route: 048
     Dates: start: 20000701
  3. AMLODIPINE [Concomitant]
     Dosage: UNK
     Route: 048
     Dates: start: 20000701
  4. BISOPROLOL [Concomitant]
     Dosage: UNK
     Route: 048
     Dates: start: 20000701
  5. FUROSEMID [Concomitant]
     Dosage: UNK
     Route: 048
     Dates: start: 20070709
  6. PHENPROCOUMON [Concomitant]
     Dosage: UNK
     Route: 048
     Dates: start: 20000101
  7. LEVOTHYROXINE SODIUM [Concomitant]
     Dosage: UNK
     Route: 048
     Dates: start: 20070523

REACTIONS (2)
  - CEREBRAL INFARCTION [None]
  - SEPSIS [None]
